FAERS Safety Report 23888112 (Version 2)
Quarter: 2024Q2

REPORT INFORMATION
  Report Type: Spontaneous
  Country: JP (occurrence: None)
  Receive Date: 20240523
  Receipt Date: 20240529
  Transmission Date: 20240716
  Serious: No
  Sender: FDA-Public Use
  Company Number: 2024A116270

PATIENT
  Age: 81 Year
  Sex: Male

DRUGS (6)
  1. FASENRA [Suspect]
     Active Substance: BENRALIZUMAB
     Indication: Asthma-chronic obstructive pulmonary disease overlap syndrome
     Dosage: DOSE UNKNOWN
     Route: 058
  2. TEZSPIRE [Concomitant]
     Active Substance: TEZEPELUMAB-EKKO
     Indication: Asthma-chronic obstructive pulmonary disease overlap syndrome
     Dosage: DOSE UNKNOWN
     Route: 058
  3. DEXAMETHASONE [Concomitant]
     Active Substance: DEXAMETHASONE
     Indication: Asthma-chronic obstructive pulmonary disease overlap syndrome
  4. PREDNISOLONE [Concomitant]
     Active Substance: PREDNISOLONE
     Indication: Asthma-chronic obstructive pulmonary disease overlap syndrome
     Dosage: 20.0MG UNKNOWN
  5. DUPILUMAB [Concomitant]
     Active Substance: DUPILUMAB
     Indication: Asthma-chronic obstructive pulmonary disease overlap syndrome
     Dosage: DOSE UNKNOWN
  6. TRELEGY ELLIPTA [Concomitant]
     Active Substance: FLUTICASONE FUROATE\UMECLIDINIUM BROMIDE\VILANTEROL TRIFENATATE

REACTIONS (1)
  - Asthma [Unknown]
